FAERS Safety Report 17250044 (Version 5)
Quarter: 2020Q1

REPORT INFORMATION
  Report Type: Report from Study
  Country: None (occurrence: US)
  Receive Date: 20200109
  Receipt Date: 20200214
  Transmission Date: 20200409
  Serious: Yes (Hospitalization, Other)
  Sender: FDA-Public Use
  Company Number: US-ABBVIE-20K-163-3221246-00

PATIENT
  Age: 65 Year
  Sex: Male
  Weight: 62.65 kg

DRUGS (8)
  1. RYTARY [Concomitant]
     Active Substance: CARBIDOPA\LEVODOPA
     Indication: PRODUCT USED FOR UNKNOWN INDICATION
     Dosage: 23.75-95MG ER
     Route: 048
  2. MIDODRINE [Concomitant]
     Active Substance: MIDODRINE
     Indication: PRODUCT USED FOR UNKNOWN INDICATION
     Route: 048
  3. AMBIEN [Concomitant]
     Active Substance: ZOLPIDEM TARTRATE
     Indication: PRODUCT USED FOR UNKNOWN INDICATION
     Route: 048
  4. ZOLOFT [Concomitant]
     Active Substance: SERTRALINE HYDROCHLORIDE
     Indication: PRODUCT USED FOR UNKNOWN INDICATION
     Route: 048
  5. DOCUSATE [Concomitant]
     Active Substance: DOCUSATE
     Indication: PRODUCT USED FOR UNKNOWN INDICATION
     Route: 048
  6. DUOPA [Suspect]
     Active Substance: CARBIDOPA\LEVODOPA
     Indication: MULTIPLE SYSTEM ATROPHY
     Route: 050
     Dates: start: 201808, end: 201912
  7. FLUDROCORTISONE [Concomitant]
     Active Substance: FLUDROCORTISONE
     Indication: PRODUCT USED FOR UNKNOWN INDICATION
     Route: 048
  8. DUOPA [Suspect]
     Active Substance: CARBIDOPA\LEVODOPA
     Route: 050
     Dates: start: 201912

REACTIONS (7)
  - Tracheostomy [Recovering/Resolving]
  - Device occlusion [Recovered/Resolved]
  - Dyspnoea [Recovered/Resolved]
  - Increased bronchial secretion [Not Recovered/Not Resolved]
  - Off label use [Unknown]
  - Dyspnoea [Not Recovered/Not Resolved]
  - Tracheostomy malfunction [Recovered/Resolved]

NARRATIVE: CASE EVENT DATE: 201911
